FAERS Safety Report 16864383 (Version 8)
Quarter: 2020Q4

REPORT INFORMATION
  Report Type: Report from Study
  Country: US (occurrence: US)
  Receive Date: 20190928
  Receipt Date: 20201219
  Transmission Date: 20210113
  Serious: No
  Sender: FDA-Public Use
  Company Number: PHEH2019US039741

PATIENT
  Sex: Male

DRUGS (4)
  1. COSENTYX [Suspect]
     Active Substance: SECUKINUMAB
     Dosage: 300 MG, Q4W
     Route: 058
  2. COSENTYX [Suspect]
     Active Substance: SECUKINUMAB
     Indication: PSORIASIS
     Dosage: 300 MG, QW
     Route: 058
  3. PRILOSEC [Concomitant]
     Active Substance: OMEPRAZOLE MAGNESIUM
     Indication: PRODUCT USED FOR UNKNOWN INDICATION
     Dosage: UNK
     Route: 065
  4. COSENTYX [Suspect]
     Active Substance: SECUKINUMAB
     Dosage: 300 MG, ONCE A WEEK FOR 5 WEEKS AND THEN Q 4
     Route: 058

REACTIONS (7)
  - Therapeutic product effect decreased [Unknown]
  - Pigmentation disorder [Recovering/Resolving]
  - Lacrimation increased [Unknown]
  - Scab [Recovering/Resolving]
  - Pain in extremity [Not Recovered/Not Resolved]
  - Psoriasis [Recovering/Resolving]
  - Skin plaque [Not Recovered/Not Resolved]
